FAERS Safety Report 5614500-X (Version None)
Quarter: 2008Q1

REPORT INFORMATION
  Report Type: 
  Country: None (occurrence: None)
  Receive Date: 20080205
  Receipt Date: 20080131
  Transmission Date: 20080703
  Serious: Yes (Hospitalization, Other)
  Sender: FDA-Public Use
  Company Number: AU-MERCK-0802AUS00003

PATIENT
  Age: 73 Year
  Sex: Female

DRUGS (3)
  1. FOSAMAX [Suspect]
     Indication: BONE DENSITY DECREASED
     Route: 048
     Dates: start: 20070401, end: 20070401
  2. ACETAMINOPHEN AND CODEINE PHOSPHATE [Concomitant]
     Indication: ARTHRITIS
     Route: 065
  3. ACETAMINOPHEN [Concomitant]
     Indication: ARTHRITIS
     Route: 065

REACTIONS (9)
  - ABASIA [None]
  - ARTHROPATHY [None]
  - ASTHENIA [None]
  - BLOOD IRON DECREASED [None]
  - BLOOD PRESSURE DECREASED [None]
  - EATING DISORDER [None]
  - GASTROINTESTINAL HAEMORRHAGE [None]
  - STOMACH DISCOMFORT [None]
  - WEIGHT DECREASED [None]
